FAERS Safety Report 7786547-9 (Version None)
Quarter: 2011Q3

REPORT INFORMATION
  Report Type: 
  Country: None (occurrence: None)
  Receive Date: 20110929
  Receipt Date: 20110816
  Transmission Date: 20111222
  Serious: Yes (Other)
  Sender: FDA-Public Use
  Company Number: GB-GLAXOSMITHKLINE-B0740434A

PATIENT
  Sex: Male
  Weight: 84 kg

DRUGS (4)
  1. ALBUTEROL [Concomitant]
     Route: 055
  2. SERETIDE [Suspect]
     Indication: CHRONIC OBSTRUCTIVE PULMONARY DISEASE
     Route: 065
     Dates: start: 20110210
  3. PRILOSEC [Concomitant]
     Route: 048
  4. DICLOFENAC SODIUM [Concomitant]
     Route: 048

REACTIONS (10)
  - THROAT TIGHTNESS [None]
  - PAIN [None]
  - DIZZINESS [None]
  - MALAISE [None]
  - OROPHARYNGEAL PAIN [None]
  - PRURITUS [None]
  - DRUG HYPERSENSITIVITY [None]
  - NASAL OEDEMA [None]
  - HEADACHE [None]
  - VISUAL IMPAIRMENT [None]
